FAERS Safety Report 6170830-7 (Version None)
Quarter: 2009Q2

REPORT INFORMATION
  Report Type: 
  Country: None (occurrence: None)
  Receive Date: 20090427
  Receipt Date: 20090416
  Transmission Date: 20091009
  Serious: Yes (Death, Disabling)
  Sender: FDA-Public Use
  Company Number: 233688K09USA

PATIENT
  Age: 51 Year
  Sex: Male

DRUGS (2)
  1. REBIF [Suspect]
     Indication: MULTIPLE SCLEROSIS
     Dosage: 44 MCG, 3 IN 1 WEEKS, SUBCUTANEOUS
     Route: 058
     Dates: start: 20051226, end: 20090323
  2. BACLOFEN [Concomitant]

REACTIONS (4)
  - COMPLETED SUICIDE [None]
  - DEMENTIA [None]
  - GUN SHOT WOUND [None]
  - MULTIPLE SCLEROSIS [None]
